FAERS Safety Report 16540771 (Version 1)
Quarter: 2019Q3

REPORT INFORMATION
  Report Type: Spontaneous
  Country: US (occurrence: US)
  Receive Date: 20190707
  Receipt Date: 20190707
  Transmission Date: 20191004
  Serious: No
  Sender: FDA-Public Use
  Company Number: None

PATIENT
  Age: 30 Year
  Sex: Female
  Weight: 54.45 kg

DRUGS (2)
  1. SYNTHROID [Suspect]
     Active Substance: LEVOTHYROXINE SODIUM
     Indication: AUTOIMMUNE THYROIDITIS
     Dosage: ?          QUANTITY:1 TABLET(S);?
     Route: 048
     Dates: start: 20190702, end: 20190706
  2. CUTRELLE PROBIOTIC [Concomitant]

REACTIONS (5)
  - Dizziness [None]
  - Chills [None]
  - Heart rate increased [None]
  - Throat tightness [None]
  - Malaise [None]

NARRATIVE: CASE EVENT DATE: 20190704
